FAERS Safety Report 16527666 (Version 11)
Quarter: 2021Q4

REPORT INFORMATION
  Report Type: Report from Study
  Country: JP (occurrence: JP)
  Receive Date: 20190703
  Receipt Date: 20211223
  Transmission Date: 20220303
  Serious: Yes (Hospitalization, Other)
  Sender: FDA-Public Use
  Company Number: JP-JT-EVA201803964GILEAD-001

PATIENT
  Age: 31 Year
  Sex: Male

DRUGS (40)
  1. EMTRICITABINE\TENOFOVIR [Suspect]
     Active Substance: EMTRICITABINE\TENOFOVIR
     Indication: HIV infection
     Dosage: 1 DF, 1D
     Route: 048
     Dates: start: 20170526
  2. TIVICAY [Suspect]
     Active Substance: DOLUTEGRAVIR SODIUM
     Indication: HIV infection
     Dosage: 50 MG, QD
     Route: 048
     Dates: start: 20160125
  3. TIVICAY [Suspect]
     Active Substance: DOLUTEGRAVIR SODIUM
     Dosage: 50 MG, QD
     Route: 048
     Dates: start: 20140508, end: 20170731
  4. TIVICAY [Suspect]
     Active Substance: DOLUTEGRAVIR SODIUM
     Dosage: 1 DOSAGE FORM, QD
     Route: 048
     Dates: start: 20170401
  5. ISENTRESS [Concomitant]
     Active Substance: RALTEGRAVIR POTASSIUM
     Indication: HIV infection
     Dosage: 800 MG, QD
     Dates: start: 20110513, end: 20160124
  6. LIPIDIL [Concomitant]
     Active Substance: FENOFIBRATE
     Indication: Dyslipidaemia
     Dosage: 80 MG, QD
     Route: 048
     Dates: start: 20170401
  7. PROCATEROL HYDROCHLORIDE [Concomitant]
     Active Substance: PROCATEROL HYDROCHLORIDE
     Indication: Asthma
     Dosage: 10 UG, BID
     Route: 055
     Dates: start: 20170401
  8. FLUTICASONE FUROATE\VILANTEROL TRIFENATATE [Concomitant]
     Active Substance: FLUTICASONE FUROATE\VILANTEROL TRIFENATATE
     Indication: Asthma
     Dosage: 200 UG, QD
     Route: 055
     Dates: start: 20170401
  9. SINGULAIR [Concomitant]
     Active Substance: MONTELUKAST SODIUM
     Indication: Asthma
     Dosage: 10 MG, QD
     Route: 048
     Dates: start: 20170401
  10. LANSOPRAZOLE [Concomitant]
     Active Substance: LANSOPRAZOLE
     Indication: Gastrooesophageal reflux disease
     Dosage: 15 MG, QD
     Route: 065
     Dates: start: 20170401, end: 20180707
  11. LANSOPRAZOLE [Concomitant]
     Active Substance: LANSOPRAZOLE
     Dosage: UNK
     Route: 065
     Dates: start: 20180707
  12. REBAMIPIDE [Concomitant]
     Active Substance: REBAMIPIDE
     Indication: Prophylaxis
     Dosage: UNK
     Route: 048
     Dates: start: 20180119, end: 20191216
  13. RABEPRAZOLE SODIUM [Concomitant]
     Active Substance: RABEPRAZOLE SODIUM
     Indication: Gastrooesophageal reflux disease
     Dosage: UNK
     Route: 048
     Dates: start: 20180707, end: 20191216
  14. LITHIUM CARBONATE [Concomitant]
     Active Substance: LITHIUM CARBONATE
     Indication: Schizophrenia
     Dosage: UNK
     Route: 048
  15. LITHIUM CARBONATE [Concomitant]
     Active Substance: LITHIUM CARBONATE
     Dosage: 800 MG, BID
     Route: 048
  16. BLONANSERIN [Concomitant]
     Active Substance: BLONANSERIN
     Indication: Schizophrenia
     Dosage: UNK
     Route: 048
  17. BLONANSERIN [Concomitant]
     Active Substance: BLONANSERIN
     Dosage: 6 MG, BID
     Route: 048
  18. MEXAZOLAM [Concomitant]
     Active Substance: MEXAZOLAM
     Indication: Schizophrenia
     Dosage: 1 MG, QD
     Route: 048
  19. MEXAZOLAM [Concomitant]
     Active Substance: MEXAZOLAM
     Dosage: 1 MG, TID
     Route: 048
  20. PAXIL [Concomitant]
     Active Substance: PAROXETINE HYDROCHLORIDE
     Indication: Schizophrenia
     Dosage: UNK
     Route: 048
  21. PAXIL [Concomitant]
     Active Substance: PAROXETINE HYDROCHLORIDE
     Dosage: 20 MG, BID
     Route: 048
  22. ARTANE [Concomitant]
     Active Substance: TRIHEXYPHENIDYL HYDROCHLORIDE
     Indication: Schizophrenia
     Dosage: UNK
     Route: 048
  23. ARTANE [Concomitant]
     Active Substance: TRIHEXYPHENIDYL HYDROCHLORIDE
     Dosage: 4 MG, TID
     Route: 048
  24. SOLANAX [Concomitant]
     Active Substance: ALPRAZOLAM
     Indication: Schizophrenia
     Dosage: UNK
     Route: 048
  25. SOLANAX [Concomitant]
     Active Substance: ALPRAZOLAM
     Dosage: 0.4 MG, TID
     Route: 048
  26. EPERISONE HYDROCHLORIDE [Concomitant]
     Active Substance: EPERISONE HYDROCHLORIDE
     Indication: Schizophrenia
     Dosage: UNK
     Route: 048
  27. EPERISONE HYDROCHLORIDE [Concomitant]
     Active Substance: EPERISONE HYDROCHLORIDE
     Dosage: 50 MG, TID
     Route: 048
  28. ZOTEPINE [Concomitant]
     Active Substance: ZOTEPINE
     Indication: Schizophrenia
     Dosage: 200 MG, QD
     Route: 048
  29. DORAL [Concomitant]
     Active Substance: QUAZEPAM
     Indication: Schizophrenia
     Dosage: UNK
     Route: 048
  30. DORAL [Concomitant]
     Active Substance: QUAZEPAM
     Dosage: 20 MG, QD
     Route: 048
  31. CYMBALTA [Concomitant]
     Active Substance: DULOXETINE HYDROCHLORIDE
     Indication: Schizophrenia
     Dosage: UNK
     Route: 048
  32. CYMBALTA [Concomitant]
     Active Substance: DULOXETINE HYDROCHLORIDE
     Dosage: 60 MG, QD
     Route: 048
  33. ISOMYTAL [AMOBARBITAL] [Concomitant]
     Indication: Schizophrenia
     Dosage: 0.3 G, QD
  34. BROMISOVAL [Concomitant]
     Active Substance: BROMISOVAL
     Indication: Schizophrenia
     Dosage: 0.5 G, QD
  35. JARDIANCE [Concomitant]
     Active Substance: EMPAGLIFLOZIN
     Indication: Diabetes mellitus
     Dosage: UNK
     Dates: start: 20180929, end: 20190614
  36. LINAGLIPTIN [Concomitant]
     Active Substance: LINAGLIPTIN
     Indication: Diabetes mellitus
     Dosage: UNK
     Dates: end: 20190614
  37. EMPAGLIFLOZIN\LINAGLIPTIN [Concomitant]
     Active Substance: EMPAGLIFLOZIN\LINAGLIPTIN
     Indication: Diabetes mellitus
     Dosage: UNK
     Dates: start: 20190615
  38. HYALURONATE SODIUM [Concomitant]
     Active Substance: HYALURONATE SODIUM
     Indication: Abnormal sensation in eye
     Dosage: UNK
  39. DIQUAFOSOL TETRASODIUM [Concomitant]
     Active Substance: DIQUAFOSOL TETRASODIUM
     Indication: Abnormal sensation in eye
     Dosage: UNK
  40. FLUOROMETHOLONE [Concomitant]
     Active Substance: FLUOROMETHOLONE
     Indication: Abnormal sensation in eye
     Dosage: UNK

REACTIONS (9)
  - Schizophrenia [Recovered/Resolved]
  - Diabetes mellitus [Recovered/Resolved]
  - Insomnia [Not Recovered/Not Resolved]
  - Gastroenteritis [Recovering/Resolving]
  - Enuresis [Not Recovered/Not Resolved]
  - Pruritus genital [Not Recovered/Not Resolved]
  - Bronchitis [Recovering/Resolving]
  - Stomatitis [Not Recovered/Not Resolved]
  - Electrocardiogram abnormal [Recovered/Resolved]

NARRATIVE: CASE EVENT DATE: 20170929
